FAERS Safety Report 6455251-1 (Version None)
Quarter: 2009Q4

REPORT INFORMATION
  Report Type: 
  Country: None (occurrence: None)
  Receive Date: 20091119
  Receipt Date: 20091105
  Transmission Date: 20100525
  Serious: Yes (Other)
  Sender: FDA-Public Use
  Company Number: 8054288

PATIENT
  Sex: Female

DRUGS (2)
  1. CIMZIA [Suspect]
     Indication: PSORIASIS
     Dosage: 400 MG SC
     Route: 058
     Dates: start: 20091031
  2. CIMZIA [Suspect]
     Indication: RHEUMATOID ARTHRITIS
     Dosage: 400 MG SC
     Route: 058
     Dates: start: 20091031

REACTIONS (8)
  - ALOPECIA [None]
  - CHEILITIS [None]
  - CONDITION AGGRAVATED [None]
  - GINGIVAL PAIN [None]
  - GINGIVAL SWELLING [None]
  - LIP SWELLING [None]
  - PSORIASIS [None]
  - TONGUE BLISTERING [None]
